FAERS Safety Report 18319122 (Version 1)
Quarter: 2020Q3

REPORT INFORMATION
  Report Type: Spontaneous
  Country: US (occurrence: US)
  Receive Date: 20200928
  Receipt Date: 20200928
  Transmission Date: 20201103
  Serious: No
  Sender: FDA-Public Use
  Company Number: None

PATIENT
  Age: 71 Year
  Sex: Male

DRUGS (22)
  1. FLORAJEN3 [Concomitant]
  2. GLATIRAMER [Suspect]
     Active Substance: GLATIRAMER
     Indication: MULTIPLE SCLEROSIS
     Dosage: ?          OTHER FREQUENCY:WEEKLY;?
     Route: 058
     Dates: start: 20190503
  3. ACYCLOVIR. [Concomitant]
     Active Substance: ACYCLOVIR
  4. BACLOFEN. [Concomitant]
     Active Substance: BACLOFEN
  5. BENTYL [Concomitant]
     Active Substance: DICYCLOMINE HYDROCHLORIDE
  6. INDAPAMIDE. [Concomitant]
     Active Substance: INDAPAMIDE
  7. JANUMET [Concomitant]
     Active Substance: METFORMIN HYDROCHLORIDE\SITAGLIPTIN PHOSPHATE
  8. METOPROLOL TARTRATE. [Concomitant]
     Active Substance: METOPROLOL TARTRATE
  9. VITAMIN B12 [Concomitant]
     Active Substance: CYANOCOBALAMIN
  10. FISH OIL [Concomitant]
     Active Substance: FISH OIL
  11. MAGOX [Concomitant]
  12. MULTIVITAMIN [Concomitant]
     Active Substance: VITAMINS
  13. BIOTIN [Concomitant]
     Active Substance: BIOTIN
  14. LEVAQUIN [Concomitant]
     Active Substance: LEVOFLOXACIN
  15. MODAFINIL. [Concomitant]
     Active Substance: MODAFINIL
  16. TYLENOL, VITAMIN D3 [Concomitant]
  17. AMANTADINE. [Concomitant]
     Active Substance: AMANTADINE HYDROCHLORIDE
  18. CRANBERRY. [Concomitant]
     Active Substance: CRANBERRY
  19. FENOFIBRATE. [Concomitant]
     Active Substance: FENOFIBRATE
  20. WELL BEGIN [Concomitant]
  21. CELEBREX [Concomitant]
     Active Substance: CELECOXIB
  22. MYRBETRIQ, SUPER B [Concomitant]

REACTIONS (2)
  - Musculoskeletal stiffness [None]
  - Bladder disorder [None]

NARRATIVE: CASE EVENT DATE: 20200926
